FAERS Safety Report 15632504 (Version 1)
Quarter: 2018Q4

REPORT INFORMATION
  Report Type: Spontaneous
  Country: US (occurrence: US)
  Receive Date: 20181119
  Receipt Date: 20181119
  Transmission Date: 20190205
  Serious: Yes (Hospitalization, Other)
  Sender: FDA-Public Use
  Company Number: US-JNJFOC-20181125219

PATIENT
  Age: 70 Year
  Sex: Female

DRUGS (1)
  1. IBRUTINIB [Suspect]
     Active Substance: IBRUTINIB
     Indication: CHRONIC LYMPHOCYTIC LEUKAEMIA
     Route: 048
     Dates: start: 201501, end: 201709

REACTIONS (4)
  - Lymphocytosis [Unknown]
  - Cerebral infarction [Unknown]
  - Progressive multifocal leukoencephalopathy [Unknown]
  - Thrombocytopenia [Unknown]
